FAERS Safety Report 15384195 (Version 1)
Quarter: 2018Q3

REPORT INFORMATION
  Report Type: Report from Study
  Country: US (occurrence: US)
  Receive Date: 20180914
  Receipt Date: 20180914
  Transmission Date: 20181010
  Serious: Yes (Hospitalization, Other)
  Sender: FDA-Public Use
  Company Number: US-TAKEDA-2018TUS016039

PATIENT
  Age: 70 Year
  Sex: Female

DRUGS (3)
  1. ORTHOVISC [Concomitant]
     Active Substance: HYALURONIC ACID
     Indication: OSTEOARTHRITIS
     Dosage: UNK
     Route: 050
  2. VEDOLIZUMAB [Suspect]
     Active Substance: VEDOLIZUMAB
     Indication: CROHN^S DISEASE
     Dosage: UNK
     Route: 042
     Dates: start: 201701
  3. VEDOLIZUMAB [Suspect]
     Active Substance: VEDOLIZUMAB
     Dosage: UNK UNK, Q4WEEKS
     Route: 042
     Dates: start: 2018

REACTIONS (8)
  - Headache [Unknown]
  - Female genital tract fistula [Unknown]
  - Therapeutic reaction time decreased [Unknown]
  - Condition aggravated [Unknown]
  - Intestinal obstruction [Unknown]
  - Memory impairment [Unknown]
  - Malaise [Unknown]
  - Off label use [Unknown]

NARRATIVE: CASE EVENT DATE: 201701
